FAERS Safety Report 12284831 (Version 1)
Quarter: 2016Q2

REPORT INFORMATION
  Report Type: Spontaneous
  Country: US (occurrence: US)
  Receive Date: 20160420
  Receipt Date: 20160420
  Transmission Date: 20160815
  Serious: No
  Sender: FDA-Public Use
  Company Number: US-TEVA-648063USA

PATIENT
  Sex: Female

DRUGS (2)
  1. ZECUITY [Suspect]
     Active Substance: SUMATRIPTAN SUCCINATE
     Dates: start: 20160322
  2. ZECUITY [Suspect]
     Active Substance: SUMATRIPTAN SUCCINATE
     Dates: start: 20160318

REACTIONS (6)
  - Application site erythema [Recovering/Resolving]
  - Application site paraesthesia [Unknown]
  - Application site pruritus [Unknown]
  - Application site vesicles [Recovered/Resolved]
  - Application site inflammation [Recovered/Resolved]
  - Application site pain [Unknown]
